FAERS Safety Report 4336984-X (Version None)
Quarter: 2004Q2

REPORT INFORMATION
  Report Type: 
  Country: None (occurrence: None)
  Receive Date: 20040408
  Receipt Date: 20040330
  Transmission Date: 20050107
  Serious: Yes (Other)
  Sender: FDA-Public Use
  Company Number: US-SHR-04-021606

PATIENT
  Age: 43 Year
  Sex: Female
  Weight: 44.9 kg

DRUGS (8)
  1. BETASERON [Suspect]
     Indication: MULTIPLE SCLEROSIS
     Dosage: 8 MIU, EVERY 2D, SUBCUTANEOUS
     Route: 058
     Dates: start: 20031008, end: 20040120
  2. BETASERON [Suspect]
     Indication: MULTIPLE SCLEROSIS RELAPSE
     Dosage: 8 MIU, EVERY 2D, SUBCUTANEOUS
     Route: 058
     Dates: start: 20031008, end: 20040120
  3. BETASERON [Suspect]
     Indication: MULTIPLE SCLEROSIS
     Dosage: 8 MIU, EVERY 2D, SUBCUTANEOUS
     Route: 058
     Dates: start: 20040311
  4. BETASERON [Suspect]
     Indication: MULTIPLE SCLEROSIS RELAPSE
     Dosage: 8 MIU, EVERY 2D, SUBCUTANEOUS
     Route: 058
     Dates: start: 20040311
  5. ZANAFLEX [Suspect]
     Dosage: ORAL
     Route: 048
     Dates: end: 20040120
  6. NEURONTIN [Suspect]
     Dosage: ORAL
     Route: 048
     Dates: end: 20040120
  7. NEURONTIN [Suspect]
     Dosage: ORAL
     Route: 048
     Dates: start: 20040301
  8. POTASSIUM (POTASSIUM) [Suspect]
     Dosage: ORAL
     Route: 048
     Dates: end: 20040120

REACTIONS (4)
  - ALANINE AMINOTRANSFERASE INCREASED [None]
  - ASPARTATE AMINOTRANSFERASE INCREASED [None]
  - BLOOD BILIRUBIN INCREASED [None]
  - LIVER FUNCTION TEST ABNORMAL [None]
